FAERS Safety Report 6938852-3 (Version None)
Quarter: 2010Q3

REPORT INFORMATION
  Report Type: 
  Country: None (occurrence: None)
  Receive Date: 20100824
  Receipt Date: 20100816
  Transmission Date: 20110219
  Serious: Yes (Congenital Anomaly)
  Sender: FDA-Public Use
  Company Number: B0668190A

PATIENT

DRUGS (4)
  1. BETAMETHASONE VALERATE [Suspect]
     Indication: DERMATITIS
  2. TRAZODONE HYDROCHLORIDE [Suspect]
     Indication: ANXIETY
     Dates: start: 20090828, end: 20091101
  3. CITALOPRAM HYDROBROMIDE [Suspect]
     Indication: ANXIETY
     Dates: start: 20090923
  4. DIAZEPAM [Suspect]
     Indication: ANXIETY
     Dates: start: 20090827

REACTIONS (2)
  - CLEFT PALATE [None]
  - DRUG EXPOSURE DURING PREGNANCY [None]
